FAERS Safety Report 8511104 (Version 2)
Quarter: 2012Q4

REPORT INFORMATION
  Report Type: 
  Country: US (occurrence: US)
  Receive Date: 20120413
  Receipt Date: 20121130
  Transmission Date: 20130627
  Serious: Yes (Death, Hospitalization, Other)
  Sender: FDA-Public Use
  Company Number: PHEH2012US007703

PATIENT
  Age: 75 Year
  Sex: Female

DRUGS (1)
  1. EXELON PATCH [Suspect]
     Indication: DEMENTIA ALZHEIMER^S TYPE
     Dosage: 9.5 mg, daily
     Route: 062

REACTIONS (7)
  - Death [Fatal]
  - Coma [Unknown]
  - Lethargy [Unknown]
  - Eating disorder [Unknown]
  - Sleep disorder [Unknown]
  - Overdose [Unknown]
  - Incorrect dose administered [Unknown]
